FAERS Safety Report 6790478-0 (Version None)
Quarter: 2010Q2

REPORT INFORMATION
  Report Type: 
  Country: None (occurrence: None)
  Receive Date: 20100624
  Receipt Date: 20100618
  Transmission Date: 20101027
  Serious: Yes (Death)
  Sender: FDA-Public Use
  Company Number: DE-SANOFI-AVENTIS-2010SA035954

PATIENT
  Age: 87 Year
  Weight: 90 kg

DRUGS (4)
  1. PLAVIX [Suspect]
     Indication: ACUTE CORONARY SYNDROME
     Route: 048
     Dates: start: 20100418, end: 20100418
  2. PLAVIX [Suspect]
     Route: 048
     Dates: start: 20100419, end: 20100430
  3. ACETYLSALICYLIC ACID [Suspect]
  4. HEPARIN [Suspect]
     Indication: DRUG USE FOR UNKNOWN INDICATION

REACTIONS (1)
  - ANGINA PECTORIS [None]
